FAERS Safety Report 8645880 (Version 3)
Quarter: 2012Q4

REPORT INFORMATION
  Report Type: 
  Country: US (occurrence: US)
  Receive Date: 20120702
  Receipt Date: 20121116
  Transmission Date: 20130627
  Serious: Yes (Death, Hospitalization)
  Sender: FDA-Public Use
  Company Number: US-GLAXOSMITHKLINE-A0982468A

PATIENT
  Age: 73 Year
  Sex: Male

DRUGS (1)
  1. ADVAIR [Suspect]
     Indication: LUNG DISORDER
     Route: 055
     Dates: start: 201202

REACTIONS (4)
  - Multi-organ failure [Fatal]
  - Myocardial infarction [Unknown]
  - Sepsis [Unknown]
  - Respiratory failure [Unknown]
